FAERS Safety Report 16070102 (Version 1)
Quarter: 2019Q1

REPORT INFORMATION
  Report Type: Spontaneous
  Country: US (occurrence: US)
  Receive Date: 20190314
  Receipt Date: 20190314
  Transmission Date: 20190418
  Serious: No
  Sender: FDA-Public Use
  Company Number: US-PHARMING-PHAUS2019000179

PATIENT

DRUGS (12)
  1. RUCONEST [Suspect]
     Active Substance: HUMAN C1-ESTERASE INHIBITOR
     Indication: HEREDITARY ANGIOEDEMA
     Dosage: 4200 IU, QOD PRN
     Route: 042
     Dates: start: 20180714
  2. KALBITOR [Concomitant]
     Active Substance: ECALLANTIDE
  3. VENTOLIN [Concomitant]
     Active Substance: ALBUTEROL SULFATE
  4. VITAMIN D2 [Concomitant]
     Active Substance: ERGOCALCIFEROL
  5. FIRAZYR [Concomitant]
     Active Substance: ICATIBANT ACETATE
  6. PROGESTERONE. [Concomitant]
     Active Substance: PROGESTERONE
  7. ONDANSETRON [Concomitant]
     Active Substance: ONDANSETRON
  8. DIPHENHYDRAMINE. [Concomitant]
     Active Substance: DIPHENHYDRAMINE
  9. HEPARIN [Concomitant]
     Active Substance: HEPARIN SODIUM
  10. TAKHZYRO [Concomitant]
     Active Substance: LANADELUMAB-FLYO
  11. SODIUM CHLORIDE. [Concomitant]
     Active Substance: SODIUM CHLORIDE
  12. STERILE WATER [Concomitant]
     Active Substance: WATER

REACTIONS (1)
  - Drug ineffective for unapproved indication [Unknown]
